FAERS Safety Report 16485524 (Version 3)
Quarter: 2020Q1

REPORT INFORMATION
  Report Type: Report from Study
  Country: US (occurrence: US)
  Receive Date: 20190627
  Receipt Date: 20200131
  Transmission Date: 20200409
  Serious: Yes (Death, Other)
  Sender: FDA-Public Use
  Company Number: US-009507513-1906USA007726

PATIENT
  Age: 69 Year
  Sex: Female

DRUGS (13)
  1. HYDROCHLOROTHIAZIDE. [Concomitant]
     Active Substance: HYDROCHLOROTHIAZIDE
  2. TRAZODONE HYDROCHLORIDE. [Concomitant]
     Active Substance: TRAZODONE HYDROCHLORIDE
  3. LOMOTIL [Concomitant]
     Active Substance: ATROPINE SULFATE\DIPHENOXYLATE HYDROCHLORIDE
  4. METOPROLOL. [Concomitant]
     Active Substance: METOPROLOL
  5. COZAAR [Concomitant]
     Active Substance: LOSARTAN POTASSIUM
  6. PERCOCET [Concomitant]
     Active Substance: ACETAMINOPHEN\OXYCODONE HYDROCHLORIDE
  7. TEMODAR [Suspect]
     Active Substance: TEMOZOLOMIDE
     Dosage: 300 MILLIGRAM, QD (3 PILLS IN THE EVENING)
     Route: 048
     Dates: start: 20180913
  8. IMODIUM [Concomitant]
     Active Substance: LOPERAMIDE HYDROCHLORIDE
  9. OXYCODONE [Concomitant]
     Active Substance: OXYCODONE
  10. TEMODAR [Suspect]
     Active Substance: TEMOZOLOMIDE
     Dosage: SECOND ROUND
     Route: 048
     Dates: end: 201903
  11. TEMODAR [Suspect]
     Active Substance: TEMOZOLOMIDE
     Indication: LUNG NEOPLASM MALIGNANT
     Dosage: UNK
     Route: 048
     Dates: start: 201808
  12. AFINITOR [Suspect]
     Active Substance: EVEROLIMUS
     Dosage: UNK
  13. LYRICA [Concomitant]
     Active Substance: PREGABALIN

REACTIONS (17)
  - Hemiplegia [Unknown]
  - Eye discharge [Unknown]
  - Decreased appetite [Unknown]
  - Product use in unapproved indication [Unknown]
  - Adverse event [Unknown]
  - Oncologic complication [Fatal]
  - Incontinence [Unknown]
  - Visual impairment [Unknown]
  - Oral mucosal eruption [Unknown]
  - Therapeutic product effect incomplete [Unknown]
  - Neuroendocrine tumour of the lung [Fatal]
  - Haemoglobin decreased [Recovered/Resolved]
  - Jaundice [Unknown]
  - Memory impairment [Unknown]
  - Confusional state [Unknown]
  - Diarrhoea [Unknown]
  - Adverse event [Unknown]

NARRATIVE: CASE EVENT DATE: 201808
